FAERS Safety Report 20958349 (Version 5)
Quarter: 2023Q1

REPORT INFORMATION
  Report Type: Spontaneous
  Country: US (occurrence: US)
  Receive Date: 20220614
  Receipt Date: 20230322
  Transmission Date: 20230417
  Serious: Yes (Other)
  Sender: FDA-Public Use
  Company Number: US-BRISTOL-MYERS SQUIBB COMPANY-2022-046446

PATIENT
  Age: 76 Year
  Sex: Male

DRUGS (19)
  1. POMALYST [Suspect]
     Active Substance: POMALIDOMIDE
     Indication: Plasma cell myeloma
     Dosage: FREQUENCY- TAKE 1 CAPSULE BY MOUTH DAILY FOR 14 DAYS FOLLOWED BY 14-DAY BREAK.
     Route: 048
     Dates: start: 20210616
  2. POMALYST [Suspect]
     Active Substance: POMALIDOMIDE
     Dosage: 10 DAYS ON , 18 DAYS OFF
     Route: 048
     Dates: start: 20210622
  3. POMALYST [Suspect]
     Active Substance: POMALIDOMIDE
     Dosage: 10 DAYS ON , 18 DAYS OFF
     Route: 048
  4. POMALYST [Suspect]
     Active Substance: POMALIDOMIDE
     Dosage: TAKE 1 CAPSULE BY MOUTH EVERY DAY
     Route: 048
  5. ELIQUIS [Suspect]
     Active Substance: APIXABAN
     Indication: Product used for unknown indication
     Route: 048
     Dates: start: 20220329
  6. ZOVIRAX [Concomitant]
     Active Substance: ACYCLOVIR
     Indication: Product used for unknown indication
     Dosage: 2TIMES DAILY BY MOUTH
     Route: 048
     Dates: start: 20210921
  7. AMOXIL [Concomitant]
     Active Substance: AMOXICILLIN
     Indication: Product used for unknown indication
     Dosage: TAKE 4 CAPSULE ONE HOUR PRIOR TO DENTAL PROCEDURE
     Dates: start: 20220718
  8. ROCALTROL [Concomitant]
     Active Substance: CALCITRIOL
     Indication: Product used for unknown indication
     Dosage: TAKE 2 CAPSULES (0.5 MCG TOTAL) DAILY ?BY MOUTH 3 MONTH SUPPLY
     Route: 048
     Dates: start: 20210923
  9. ERGOCALCIFEROL [Concomitant]
     Active Substance: ERGOCALCIFEROL
     Dosage: TAKE 400  INT^L UNITS DAILY BY MOUTH
     Route: 048
  10. DECADRON [Concomitant]
     Active Substance: DEXAMETHASONE
     Indication: Product used for unknown indication
     Dosage: TAKE 5 TABS (20 MG TOTAL) BY MOUTH EVERY 14 DAYS TAKE 5 TABLETS [20MG]?ON DAYS I AND 15 OF TREATMENT
     Route: 048
     Dates: start: 20210202
  11. DECADRON [Concomitant]
     Active Substance: DEXAMETHASONE
     Dosage: TAKE 5 TABS (20 MG TOTAL) BY MOUTH  ONCE A WEEK THE DAY AFTER ?DARATUMUMAB INFUSION
     Route: 048
     Dates: start: 20210614
  12. CYMBALTA [Concomitant]
     Active Substance: DULOXETINE HYDROCHLORIDE
     Indication: Product used for unknown indication
     Dosage: CAP DR PARTICLES ,TAKE I CAPSULE (60 MG TOTAL) BY  MOUTH DAILY
     Route: 048
     Dates: start: 20220517
  13. ALLEGRA [Concomitant]
     Active Substance: FEXOFENADINE HYDROCHLORIDE
     Indication: Product used for unknown indication
     Dosage: TAKE 180 MG BY MOUTH DAILY  REASONS: ALTERNATES WITH CLARITIN
     Route: 048
  14. NEURONTIN [Concomitant]
     Active Substance: GABAPENTIN
     Indication: Product used for unknown indication
     Dosage: TAKE 1  CAPSULE(300 MG) BY  MOUTH THREE TIMES DAILY
     Route: 048
     Dates: start: 20220328
  15. RITALIN [Concomitant]
     Active Substance: METHYLPHENIDATE HYDROCHLORIDE
     Indication: Product used for unknown indication
     Dosage: TAKE I TABLET (5 MG TOTAL) BY MOUTH ?DAILY
     Route: 048
     Dates: start: 20220725
  16. VITAMINS NOS [Concomitant]
     Active Substance: VITAMINS
     Indication: Product used for unknown indication
     Dosage: TAKE 1 TAB BY MOUTH DAILY
     Route: 048
  17. COMPAZINE [Concomitant]
     Active Substance: PROCHLORPERAZINE MALEATE
     Indication: Product used for unknown indication
     Dosage: TAKE 1 TAB (10 MG TOTAL) BY MOUTH  EVERY 6 HOURS AS NEEDED FOR NAUSEA
     Route: 048
     Dates: start: 20210614
  18. INDERAL [Concomitant]
     Active Substance: PROPRANOLOL HYDROCHLORIDE
     Indication: Product used for unknown indication
     Dosage: 1 TAB BY MOUTH TWICE DAILY
     Route: 048
     Dates: start: 20211021
  19. BACTRIM DS [Concomitant]
     Active Substance: SULFAMETHOXAZOLE\TRIMETHOPRIM
     Indication: Product used for unknown indication
     Dosage: 800-160MG ( TAKE 1 TABLET BY MOUTH EVERY 48 ?HOURS ON MONDAY, WEDNESDAY, ?AND FRIDAY ONLY )
     Route: 048
     Dates: start: 20220321

REACTIONS (3)
  - Neutropenia [Recovering/Resolving]
  - Hypogammaglobulinaemia [Unknown]
  - Off label use [Unknown]

NARRATIVE: CASE EVENT DATE: 20220201
